FAERS Safety Report 23320135 (Version 1)
Quarter: 2023Q4

REPORT INFORMATION
  Report Type: Spontaneous
  Country: US (occurrence: None)
  Receive Date: 20231219
  Receipt Date: 20231219
  Transmission Date: 20240110
  Serious: Yes (Death, Life-Threatening, Hospitalization)
  Sender: FDA-Public Use
  Company Number: None

PATIENT
  Sex: Male
  Weight: 144 kg

DRUGS (4)
  1. TALTZ [Suspect]
     Active Substance: IXEKIZUMAB
     Indication: Psoriasis
     Dosage: 1 INJECTION
  2. OXYGEN [Concomitant]
     Active Substance: OXYGEN
  3. DEVICE [Concomitant]
     Active Substance: DEVICE
  4. VITAMIN D [Concomitant]
     Active Substance: VITAMIN D NOS

REACTIONS (5)
  - Dyspnoea [None]
  - Haematological infection [None]
  - Pneumonia [None]
  - Raoultella test positive [None]
  - Enterococcus test positive [None]
